FAERS Safety Report 5404779-1 (Version None)
Quarter: 2007Q3

REPORT INFORMATION
  Report Type: 
  Country: None (occurrence: None)
  Receive Date: 20070803
  Receipt Date: 20070726
  Transmission Date: 20080115
  Serious: Yes (Death)
  Sender: FDA-Public Use
  Company Number: JP-ABBOTT-07P-087-0371095-00

PATIENT
  Sex: Male

DRUGS (17)
  1. ERYTHROCIN DRY SYRUP W 20% [Suspect]
     Indication: BRONCHITIS CHRONIC
     Route: 048
     Dates: start: 20070317, end: 20070522
  2. LEVOFLOXACIN [Suspect]
     Indication: PNEUMONIA
     Route: 048
     Dates: start: 20070514, end: 20070515
  3. LEVOFLOXACIN [Suspect]
     Route: 048
     Dates: start: 20070601, end: 20070602
  4. AMBROXOL HYDROCHLORIDE [Suspect]
     Indication: BRONCHITIS CHRONIC
     Route: 048
     Dates: start: 20070315, end: 20070522
  5. AMBROXOL HYDROCHLORIDE [Suspect]
     Route: 048
     Dates: start: 20070326, end: 20070410
  6. AMBROXOL HYDROCHLORIDE [Suspect]
     Route: 048
     Dates: start: 20070602, end: 20070614
  7. SODIUM ALGINATE [Concomitant]
     Indication: GASTRITIS
     Route: 048
     Dates: start: 20070123, end: 20070522
  8. SODIUM ALGINATE [Concomitant]
     Route: 048
     Dates: start: 20070602, end: 20070614
  9. RANITIDINE HYDROCHLORIDE [Concomitant]
     Indication: GASTRITIS
     Route: 048
     Dates: start: 20070129, end: 20070522
  10. RANITIDINE HYDROCHLORIDE [Concomitant]
     Route: 048
     Dates: start: 20070602, end: 20070614
  11. BROMHEXINE HYDROCHLORIDE [Concomitant]
     Indication: GASTRITIS
     Route: 048
     Dates: start: 20070326, end: 20070522
  12. BROMHEXINE HYDROCHLORIDE [Concomitant]
     Route: 048
     Dates: start: 20070602, end: 20070614
  13. WARFARIN POTASSIUM [Concomitant]
     Indication: DRUG USE FOR UNKNOWN INDICATION
     Route: 048
  14. WARFARIN SODIUM [Concomitant]
     Indication: VENOUS THROMBOSIS
     Route: 048
     Dates: start: 20070207, end: 20070522
  15. BIFIDOBACTERIUM [Concomitant]
     Indication: CONSTIPATION
     Route: 048
     Dates: start: 20070221, end: 20070522
  16. DIOCTYL SODIUM SULFOSUCCINATE/CASANTHRANOL [Concomitant]
     Indication: CONSTIPATION
     Route: 048
     Dates: start: 20070604, end: 20070614
  17. HUMAN RED BLOOD CELLS [Concomitant]
     Indication: ANAEMIA
     Route: 042
     Dates: start: 20070608, end: 20070612

REACTIONS (3)
  - HEPATIC FAILURE [None]
  - LIVER DISORDER [None]
  - SEPSIS [None]
